FAERS Safety Report 15264514 (Version 1)
Quarter: 2018Q3

REPORT INFORMATION
  Report Type: Spontaneous
  Country: US (occurrence: US)
  Receive Date: 20180722
  Receipt Date: 20180722
  Transmission Date: 20181010
  Serious: Yes (Disabling)
  Sender: FDA-Public Use
  Company Number: None

PATIENT
  Age: 68 Year
  Sex: Male
  Weight: 99.79 kg

DRUGS (1)
  1. SULFAMETHOXAZOLE?TRIME 800 GENERIC VERSION [Suspect]
     Active Substance: SULFAMETHOXAZOLE\TRIMETHOPRIM
     Indication: URINARY TRACT INFECTION
     Dosage: ?          QUANTITY:2 DF DOSAGE FORM;?
     Route: 048
     Dates: start: 20180717, end: 20180719

REACTIONS (14)
  - Tongue discomfort [None]
  - Erythema [None]
  - Drug hypersensitivity [None]
  - Rash [None]
  - Lip swelling [None]
  - Scar [None]
  - Oropharyngeal pain [None]
  - Glossodynia [None]
  - Pruritus [None]
  - Hypophagia [None]
  - Throat irritation [None]
  - Oral pain [None]
  - Urticaria [None]
  - Skin erosion [None]

NARRATIVE: CASE EVENT DATE: 20180718
